FAERS Safety Report 9174020 (Version 1)
Quarter: 2013Q1

REPORT INFORMATION
  Report Type: Spontaneous
  Country: US (occurrence: None)
  Receive Date: 20130318
  Receipt Date: 20130318
  Transmission Date: 20140127
  Serious: Yes (Other)
  Sender: FDA-Public Use
  Company Number: None

PATIENT
  Age: 8 Year
  Sex: Male
  Weight: 27.67 kg

DRUGS (1)
  1. QVAR [Suspect]
     Indication: SEASONAL ALLERGY
     Dosage: 1 PUFF BID INHAL
     Route: 055
     Dates: start: 20120301, end: 20130301

REACTIONS (1)
  - Pneumonia [None]
